FAERS Safety Report 7121267-5 (Version None)
Quarter: 2010Q4

REPORT INFORMATION
  Report Type: 
  Country: None (occurrence: None)
  Receive Date: 20101122
  Receipt Date: 20101122
  Transmission Date: 20110411
  Serious: No
  Sender: FDA-Public Use
  Company Number: None

PATIENT
  Age: 39 Year
  Sex: Female
  Weight: 57.6068 kg

DRUGS (1)
  1. ESTRADERM [Suspect]
     Indication: ARTIFICIAL MENOPAUSE
     Dosage: 0.05 MG ONE PATCH TWICE WEEK TRANSDERMAL
     Route: 062
     Dates: start: 20101101

REACTIONS (3)
  - APPLICATION SITE RASH [None]
  - INAPPROPRIATE SCHEDULE OF DRUG ADMINISTRATION [None]
  - PRODUCT ADHESION ISSUE [None]
